FAERS Safety Report 25525486 (Version 1)
Quarter: 2025Q3

REPORT INFORMATION
  Report Type: Spontaneous
  Country: CN (occurrence: CN)
  Receive Date: 20250707
  Receipt Date: 20250707
  Transmission Date: 20251021
  Serious: Yes (Hospitalization)
  Sender: MYLAN
  Company Number: CN-MYLANLABS-2025M1055212

PATIENT
  Age: 63 Year
  Sex: Female
  Weight: 63 kg

DRUGS (3)
  1. LYRICA [Suspect]
     Active Substance: PREGABALIN
     Indication: Neuralgia
     Dosage: 75 MILLIGRAM, TID
     Dates: start: 20250624, end: 20250627
  2. PEGLOXENATIDE [Suspect]
     Active Substance: PEGLOXENATIDE
     Indication: Neuralgia
     Dosage: 0.2 MILLIGRAM, QD (0.2 MG IH ONCE)
     Dates: start: 20250624, end: 20250627
  3. Rui qin [Concomitant]
     Indication: Neuralgia
     Dosage: 10 MILLIGRAM, QD
     Dates: start: 20250619, end: 20250627

REACTIONS (2)
  - Dizziness [Recovering/Resolving]
  - Fall [Recovering/Resolving]

NARRATIVE: CASE EVENT DATE: 20250627
